FAERS Safety Report 13779097 (Version 1)
Quarter: 2017Q3

REPORT INFORMATION
  Report Type: Spontaneous
  Country: KR (occurrence: KR)
  Receive Date: 20170721
  Receipt Date: 20170721
  Transmission Date: 20171127
  Serious: Yes (Other)
  Sender: FDA-Public Use
  Company Number: KR-PRINSTON PHARMACEUTICAL INC.-2017PRN00338

PATIENT
  Age: 65 Year
  Sex: Male

DRUGS (1)
  1. RISPERIDONE. [Suspect]
     Active Substance: RISPERIDONE
     Indication: AGGRESSION
     Route: 065

REACTIONS (1)
  - Progressive supranuclear palsy [Recovered/Resolved]
